FAERS Safety Report 17986779 (Version 2)
Quarter: 2020Q3

REPORT INFORMATION
  Report Type: Report from Study
  Country: None (occurrence: DE)
  Receive Date: 20200707
  Receipt Date: 20200715
  Transmission Date: 20201103
  Serious: Yes (Hospitalization)
  Sender: FDA-Public Use
  Company Number: DE-ABBVIE-20K-062-3470926-00

PATIENT
  Age: 79 Year
  Sex: Male

DRUGS (3)
  1. RINVOQ [Suspect]
     Active Substance: UPADACITINIB
     Indication: RHEUMATOID ARTHRITIS
     Route: 048
     Dates: start: 20200413, end: 20200701
  2. HUMIRA [Suspect]
     Active Substance: ADALIMUMAB
     Indication: RHEUMATOID ARTHRITIS
     Route: 058
     Dates: start: 20060101, end: 20200412
  3. PANTOPRAZOL [Concomitant]
     Active Substance: PANTOPRAZOLE SODIUM
     Indication: DRUG THERAPY
     Route: 048

REACTIONS (2)
  - Dyspepsia [Not Recovered/Not Resolved]
  - Oesophageal carcinoma [Not Recovered/Not Resolved]

NARRATIVE: CASE EVENT DATE: 2015
